FAERS Safety Report 22052236 (Version 5)
Quarter: 2023Q4

REPORT INFORMATION
  Report Type: Other
  Country: CA (occurrence: None)
  Receive Date: 20230302
  Receipt Date: 20231205
  Transmission Date: 20240109
  Serious: Yes (Disabling, Other)
  Sender: FDA-Public Use
  Company Number: CA-ROCHE-3294118

PATIENT
  Age: 58 Year
  Sex: Male

DRUGS (1)
  1. VABYSMO [Suspect]
     Active Substance: FARICIMAB\FARICIMAB-SVOA
     Indication: Diabetic retinal oedema
     Route: 031
     Dates: start: 20230112, end: 20230223

REACTIONS (4)
  - Blindness unilateral [Recovered/Resolved with Sequelae]
  - Eye infection [Unknown]
  - Endophthalmitis [Recovered/Resolved with Sequelae]
  - Endophthalmitis [Unknown]

NARRATIVE: CASE EVENT DATE: 20230213
